FAERS Safety Report 4287028-X (Version None)
Quarter: 2004Q1

REPORT INFORMATION
  Report Type: 
  Country: None (occurrence: None)
  Receive Date: 20040205
  Receipt Date: 20031211
  Transmission Date: 20041129
  Serious: Yes (Other)
  Sender: FDA-Public Use
  Company Number: A03200302957

PATIENT
  Age: 33 Year
  Sex: Female
  Weight: 70.3075 kg

DRUGS (5)
  1. ELOXATIN [Suspect]
     Indication: COLON CANCER
     Dosage: 150 MG Q2W - INTRAVENOUS NOS
     Route: 042
     Dates: start: 20031208, end: 20031208
  2. ELOXATIN [Suspect]
     Indication: METASTASES TO LIVER
     Dosage: 150 MG Q2W - INTRAVENOUS NOS
     Route: 042
     Dates: start: 20031208, end: 20031208
  3. FLUOROURACIL [Concomitant]
  4. LEUCOVORIN CALCIUM [Concomitant]
  5. DEXTROSE [Concomitant]

REACTIONS (6)
  - CATHETER RELATED COMPLICATION [None]
  - EXTRAVASATION [None]
  - INJECTION SITE ERYTHEMA [None]
  - INJECTION SITE OEDEMA [None]
  - INJECTION SITE PAIN [None]
  - INJECTION SITE THROMBOSIS [None]
